FAERS Safety Report 19993108 (Version 1)
Quarter: 2021Q4

REPORT INFORMATION
  Report Type: Spontaneous
  Country: US (occurrence: US)
  Receive Date: 20211025
  Receipt Date: 20211025
  Transmission Date: 20220303
  Serious: No
  Sender: FDA-Public Use
  Company Number: US-ABBVIE-21K-163-3912724-00

PATIENT
  Sex: Female

DRUGS (4)
  1. LUPRON DEPOT [Suspect]
     Active Substance: LEUPROLIDE ACETATE
     Indication: Premenstrual dysphoric disorder
     Route: 030
     Dates: start: 202103, end: 202104
  2. LUPRON DEPOT [Suspect]
     Active Substance: LEUPROLIDE ACETATE
     Indication: Endometriosis
  3. LUPRON DEPOT [Suspect]
     Active Substance: LEUPROLIDE ACETATE
     Indication: Premenstrual dysphoric disorder
     Dosage: PED
     Route: 030
     Dates: start: 202105
  4. LUPRON DEPOT [Suspect]
     Active Substance: LEUPROLIDE ACETATE
     Indication: Endometriosis

REACTIONS (5)
  - Off label use [Unknown]
  - Pelvic pain [Recovering/Resolving]
  - Abdominal pain [Recovering/Resolving]
  - Dyspepsia [Recovering/Resolving]
  - Device physical property issue [Unknown]

NARRATIVE: CASE EVENT DATE: 20210101
